FAERS Safety Report 13647115 (Version 1)
Quarter: 2017Q2

REPORT INFORMATION
  Report Type: Report from Study
  Country: US (occurrence: HU)
  Receive Date: 20170613
  Receipt Date: 20170613
  Transmission Date: 20170830
  Serious: Yes (Death, Hospitalization, Other)
  Sender: FDA-Public Use
  Company Number: US-SUNOVION-2017SUN002424

PATIENT

DRUGS (14)
  1. INDACATEROL AND GLYCOPYRROLATE [Suspect]
     Active Substance: GLYCOPYRROLATE\INDACATEROL MALEATE
     Indication: CHRONIC OBSTRUCTIVE PULMONARY DISEASE
     Dosage: 1 DF QD
     Route: 048
     Dates: start: 20170222
  2. GLYCERYL TRINITRATE [Concomitant]
     Active Substance: NITROGLYCERIN
  3. AMBROXOL [Concomitant]
     Active Substance: AMBROXOL
  4. CATAFLAM [Concomitant]
     Active Substance: DICLOFENAC POTASSIUM
  5. LEVETIRACETAM. [Concomitant]
     Active Substance: LEVETIRACETAM
  6. FUROSEMIDE. [Concomitant]
     Active Substance: FUROSEMIDE
  7. ZYLLT [Concomitant]
     Active Substance: CLOPIDOGREL BISULFATE
  8. EUPHYLONG [Concomitant]
     Active Substance: THEOPHYLLINE ANHYDROUS
  9. CLONAZEPAM. [Concomitant]
     Active Substance: CLONAZEPAM
  10. PENTOXIFYLLINE. [Concomitant]
     Active Substance: PENTOXIFYLLINE
  11. ACETYLSALICYLIC ACID [Concomitant]
     Active Substance: ASPIRIN
  12. CLEXANE [Concomitant]
     Active Substance: ENOXAPARIN SODIUM
  13. GABAPENTIN. [Concomitant]
     Active Substance: GABAPENTIN
  14. POTASSIUM [Concomitant]
     Active Substance: POTASSIUM

REACTIONS (17)
  - Cardiopulmonary failure [Fatal]
  - Aspartate aminotransferase increased [Unknown]
  - Red blood cell count decreased [Unknown]
  - Haematocrit decreased [Unknown]
  - Blood lactate dehydrogenase increased [Unknown]
  - Glomerular filtration rate decreased [Unknown]
  - Neutrophil count increased [Unknown]
  - C-reactive protein increased [Unknown]
  - Blood glucose increased [Unknown]
  - Cardiac failure congestive [Recovering/Resolving]
  - Blood urea increased [Unknown]
  - Blood alkaline phosphatase increased [Unknown]
  - Dyspnoea [Recovering/Resolving]
  - Gamma-glutamyltransferase increased [Unknown]
  - Alanine aminotransferase increased [Unknown]
  - White blood cell count increased [Unknown]
  - Blood creatinine increased [Unknown]

NARRATIVE: CASE EVENT DATE: 20170225
